FAERS Safety Report 9714770 (Version 1)
Quarter: 2013Q4

REPORT INFORMATION
  Report Type: Spontaneous
  Country: US (occurrence: US)
  Receive Date: 20131126
  Receipt Date: 20131126
  Transmission Date: 20140711
  Serious: No
  Sender: FDA-Public Use
  Company Number: US-009507513-1311USA011298

PATIENT
  Age: 34 Year
  Sex: Male

DRUGS (3)
  1. CLARITIN-D [Suspect]
     Indication: RESPIRATORY TRACT CONGESTION
     Dosage: UNK, UNKNOWN
     Route: 048
  2. CLARITIN-D [Suspect]
     Indication: NASOPHARYNGITIS
  3. CLARITIN-D [Suspect]
     Indication: HYPERSENSITIVITY

REACTIONS (2)
  - Condition aggravated [Unknown]
  - Drug effect decreased [Unknown]
